FAERS Safety Report 10210830 (Version 3)
Quarter: 2014Q2

REPORT INFORMATION
  Report Type: Spontaneous
  Country: SE (occurrence: SE)
  Receive Date: 20140602
  Receipt Date: 20140605
  Transmission Date: 20141212
  Serious: Yes (Other)
  Sender: FDA-Public Use
  Company Number: PHHY2014SE060237

PATIENT
  Sex: Female

DRUGS (4)
  1. RITALIN LA [Suspect]
     Indication: ATTENTION DEFICIT/HYPERACTIVITY DISORDER
     Dosage: 20 MG, TID (02 DF IN MORNING, 01 DF AT LUNCH)
  2. RITALIN LA [Interacting]
     Indication: OFF LABEL USE
  3. ESOMEPRAZOLE [Interacting]
     Indication: ULCER
     Dosage: 40 MG
  4. ESOMEPRAZOLE [Interacting]
     Indication: HERNIA

REACTIONS (4)
  - Drug interaction [Unknown]
  - Heart rate increased [Unknown]
  - Blood pH increased [Unknown]
  - Drug ineffective [Unknown]
